FAERS Safety Report 6866706-X (Version None)
Quarter: 2010Q2

REPORT INFORMATION
  Report Type: 
  Country: None (occurrence: None)
  Receive Date: 20100601
  Receipt Date: 20100319
  Transmission Date: 20101027
  Serious: Yes (Hospitalization)
  Sender: FDA-Public Use
  Company Number: US201002005899

PATIENT
  Age: 40 Year
  Sex: Female

DRUGS (5)
  1. BYETTA [Suspect]
     Indication: TYPE 2 DIABETES MELLITUS
     Dosage: 5 UG, 2/D, SUBCUTANEOUS
     Route: 058
     Dates: start: 20100205, end: 20100205
  2. EXENATIDE 5MCG PEN, DISPOSABLE DEVICE (EXENATIDE PEN (5MCG)) [Concomitant]
  3. AUGMENTIN /00756801/ (AMOXICILLIN SODIUM, CLAVULANATE POTASSIUM) [Concomitant]
  4. IBUPROFEN [Concomitant]
  5. LISINOPRIL [Concomitant]

REACTIONS (1)
  - ANAPHYLACTIC REACTION [None]
